FAERS Safety Report 11619209 (Version 2)
Quarter: 2016Q3

REPORT INFORMATION
  Report Type: Spontaneous
  Country: US (occurrence: US)
  Receive Date: 20151012
  Receipt Date: 20160811
  Transmission Date: 20161109
  Serious: Yes (Other)
  Sender: FDA-Public Use
  Company Number: US-BAYER-2015-436006

PATIENT
  Age: 60 Year
  Sex: Male
  Weight: 122.45 kg

DRUGS (2)
  1. CIPRO [Suspect]
     Active Substance: CIPROFLOXACIN HYDROCHLORIDE
     Indication: INFECTION
     Dosage: 500 MG, BID
     Route: 048
     Dates: start: 20000301, end: 20000310
  2. LEVAQUIN [Suspect]
     Active Substance: LEVOFLOXACIN
     Indication: UPPER RESPIRATORY TRACT INFECTION
     Dosage: 500 MG PER DAY
     Dates: start: 20080331, end: 20080408

REACTIONS (8)
  - Neuropathy peripheral [None]
  - Balance disorder [None]
  - Pain in extremity [None]
  - Emotional distress [None]
  - Neuropathy peripheral [None]
  - Pain [None]
  - Injury [None]
  - Hypoaesthesia [None]

NARRATIVE: CASE EVENT DATE: 200804
